FAERS Safety Report 9026991 (Version 3)
Quarter: 2013Q1

REPORT INFORMATION
  Report Type: Spontaneous
  Country: CZ (occurrence: CZ)
  Receive Date: 20130123
  Receipt Date: 20130211
  Transmission Date: 20140127
  Serious: Yes (Death, Hospitalization)
  Sender: FDA-Public Use
  Company Number: CZ-ELI_LILLY_AND_COMPANY-CZ201301003320

PATIENT
  Sex: Female

DRUGS (6)
  1. FORSTEO [Suspect]
     Indication: OSTEOPOROSIS
     Dosage: 20 UG, QD
     Route: 058
     Dates: start: 20120701
  2. METHOTREXATE [Concomitant]
     Dosage: 15MG, DAILY
  3. PREDNISONE [Concomitant]
     Indication: POLYMYOSITIS
     Dosage: 15MG, UNK
  4. CALCIUM WITH VITAMIN D [Concomitant]
     Indication: OSTEOPOROSIS
  5. ACIDUM FOLICUM [Concomitant]
  6. AZATIOPRIN [Concomitant]

REACTIONS (3)
  - Pneumonia [Fatal]
  - Atrial fibrillation [Recovered/Resolved]
  - Urinary tract infection [Unknown]
